FAERS Safety Report 7895469-4 (Version None)
Quarter: 2011Q4

REPORT INFORMATION
  Report Type: 
  Country: None (occurrence: None)
  Receive Date: 20111104
  Receipt Date: 20111104
  Transmission Date: 20120403
  Serious: Yes (Hospitalization)
  Sender: FDA-Public Use
  Company Number: None

PATIENT
  Sex: Female
  Weight: 95.709 kg

DRUGS (2)
  1. CELEXA [Suspect]
  2. CITALOPRAM HYDROBROMIDE [Suspect]
     Indication: DEPRESSION
     Dosage: 40 MG TAB, 2 DAILY, ORAL
     Route: 048
     Dates: start: 20070827

REACTIONS (3)
  - HYPOTENSION [None]
  - INCORRECT DOSE ADMINISTERED [None]
  - ARRHYTHMIA [None]
